FAERS Safety Report 9144073 (Version 2)
Quarter: 2013Q2

REPORT INFORMATION
  Report Type: Spontaneous
  Country: US (occurrence: US)
  Receive Date: 20130306
  Receipt Date: 20130418
  Transmission Date: 20140414
  Serious: Yes (Death, Hospitalization)
  Sender: FDA-Public Use
  Company Number: US-GLAXOSMITHKLINE-A1014654A

PATIENT
  Age: 51 Year
  Sex: Female

DRUGS (2)
  1. FLOLAN [Suspect]
     Indication: PULMONARY ARTERIAL HYPERTENSION
     Dosage: 35.9NGKM CONTINUOUS
     Route: 042
     Dates: start: 20080414
  2. ADCIRCA [Concomitant]

REACTIONS (4)
  - Death [Fatal]
  - Dyspnoea [Unknown]
  - Fatigue [Unknown]
  - Fluid overload [Unknown]
